FAERS Safety Report 10596696 (Version 1)
Quarter: 2014Q4

REPORT INFORMATION
  Report Type: Spontaneous
  Country: NO (occurrence: NO)
  Receive Date: 20141120
  Receipt Date: 20141120
  Transmission Date: 20150529
  Serious: Yes (Hospitalization)
  Sender: FDA-Public Use
  Company Number: NO-009507513-1411NOR004512

PATIENT
  Age: 28 Year
  Sex: Female

DRUGS (1)
  1. NEXPLANON [Suspect]
     Active Substance: ETONOGESTREL
     Dosage: UNK
     Route: 059
     Dates: start: 20141021, end: 20141031

REACTIONS (7)
  - Pain in extremity [Recovered/Resolved]
  - Haematoma [Recovered/Resolved]
  - Device difficult to use [Recovered/Resolved]
  - Device dislocation [Recovered/Resolved]
  - Medical device complication [Recovered/Resolved]
  - Hospitalisation [Recovered/Resolved]
  - Device deployment issue [Recovered/Resolved]

NARRATIVE: CASE EVENT DATE: 201410
